FAERS Safety Report 14612622 (Version 1)
Quarter: 2018Q1

REPORT INFORMATION
  Report Type: Spontaneous
  Country: US (occurrence: US)
  Receive Date: 20180308
  Receipt Date: 20180308
  Transmission Date: 20180509
  Serious: No
  Sender: FDA-Public Use
  Company Number: US-BAYER-2018-044931

PATIENT
  Age: 88 Year
  Sex: Male
  Weight: 68 kg

DRUGS (5)
  1. INSULIN 2 [Concomitant]
  2. LISINOPRIL. [Concomitant]
     Active Substance: LISINOPRIL
  3. COUMADIN [Concomitant]
     Active Substance: WARFARIN SODIUM
  4. LIPITOR [Concomitant]
     Active Substance: ATORVASTATIN CALCIUM
  5. MIRALAX [Suspect]
     Active Substance: POLYETHYLENE GLYCOL 3350
     Indication: GASTROINTESTINAL DISORDER
     Dosage: 1 DOSE
     Route: 048
     Dates: start: 20180305

REACTIONS (3)
  - Frequent bowel movements [Recovered/Resolved]
  - Diarrhoea [Recovered/Resolved]
  - Faeces hard [Recovered/Resolved]

NARRATIVE: CASE EVENT DATE: 20180306
